FAERS Safety Report 16465872 (Version 4)
Quarter: 2020Q3

REPORT INFORMATION
  Report Type: Spontaneous
  Country: US (occurrence: US)
  Receive Date: 20190621
  Receipt Date: 20200727
  Transmission Date: 20201102
  Serious: No
  Sender: FDA-Public Use
  Company Number: US-ACTELION-A-NJ2019-186883

PATIENT
  Age: 41 Year
  Sex: Female
  Weight: 61.22 kg

DRUGS (7)
  1. LETAIRIS [Concomitant]
     Active Substance: AMBRISENTAN
     Dosage: UNK
     Dates: start: 2016, end: 201809
  2. SILDENAFIL. [Concomitant]
     Active Substance: SILDENAFIL
     Dosage: 3 TIMES DAILY, 4 WHEN EXERCISING
     Dates: start: 201605
  3. OPSUMIT [Suspect]
     Active Substance: MACITENTAN
     Indication: PULMONARY ARTERIAL HYPERTENSION
     Dosage: 10 MG, QD
     Route: 048
     Dates: start: 201809
  4. NIFEDIPINE. [Concomitant]
     Active Substance: NIFEDIPINE
  5. UPTRAVI [Suspect]
     Active Substance: SELEXIPAG
     Dosage: 800 MCG, BID
     Route: 048
     Dates: start: 201709
  6. UPTRAVI [Suspect]
     Active Substance: SELEXIPAG
     Dosage: 600 MCG, BID
     Route: 048
  7. UPTRAVI [Suspect]
     Active Substance: SELEXIPAG
     Indication: PULMONARY ARTERIAL HYPERTENSION
     Dosage: 400 MCG, BID
     Route: 048

REACTIONS (16)
  - Arthralgia [Unknown]
  - Dyspnoea [Unknown]
  - Adverse event [Unknown]
  - Pain [Unknown]
  - Wrong technique in product usage process [Unknown]
  - Pain in jaw [Unknown]
  - Dizziness [Unknown]
  - Headache [Unknown]
  - Syncope [Unknown]
  - Heart rate increased [Unknown]
  - Malaise [Unknown]
  - Oxygen saturation decreased [Unknown]
  - Incorrect dose administered [Unknown]
  - Nausea [Unknown]
  - Oedema [Recovered/Resolved]
  - Vomiting [Unknown]

NARRATIVE: CASE EVENT DATE: 201809
